FAERS Safety Report 5657199-9 (Version None)
Quarter: 2008Q1

REPORT INFORMATION
  Report Type: 
  Country: None (occurrence: None)
  Receive Date: 20080307
  Receipt Date: 20080307
  Transmission Date: 20080703
  Serious: Yes (Death)
  Sender: FDA-Public Use
  Company Number: None

PATIENT
  Age: 24 Year
  Sex: Male
  Weight: 83.9154 kg

DRUGS (1)
  1. METHADONE   THE HIGHEST DOSE GIVEN LEGALLY [Suspect]
     Indication: DEPENDENCE
     Dosage: DAILY
     Dates: start: 20060326, end: 20060327

REACTIONS (2)
  - ACCIDENTAL OVERDOSE [None]
  - DRUG DIVERSION [None]
